FAERS Safety Report 7615719-9 (Version None)
Quarter: 2011Q3

REPORT INFORMATION
  Report Type: 
  Country: None (occurrence: None)
  Receive Date: 20110715
  Receipt Date: 20110715
  Transmission Date: 20111222
  Serious: Yes (Other)
  Sender: FDA-Public Use
  Company Number: None

PATIENT
  Age: 6 Year
  Sex: Female

DRUGS (1)
  1. METHYLPHENIDATE [Suspect]
     Indication: ATTENTION DEFICIT/HYPERACTIVITY DISORDER
     Dosage: 18MG 1 IN THE MORING PO
     Route: 048
     Dates: start: 20110707, end: 20110714

REACTIONS (7)
  - IMPULSIVE BEHAVIOUR [None]
  - AGGRESSION [None]
  - ANGER [None]
  - DYSGRAPHIA [None]
  - PRODUCT SUBSTITUTION ISSUE [None]
  - LOGORRHOEA [None]
  - CRYING [None]
